FAERS Safety Report 9631239 (Version 3)
Quarter: 2013Q4

REPORT INFORMATION
  Report Type: Spontaneous
  Country: SE (occurrence: SE)
  Receive Date: 20131018
  Receipt Date: 20131121
  Transmission Date: 20140711
  Serious: Yes (Life-Threatening, Hospitalization, Other)
  Sender: FDA-Public Use
  Company Number: PHHY2013SE116969

PATIENT
  Sex: Male
  Weight: 61.4 kg

DRUGS (8)
  1. RITALIN [Suspect]
     Indication: ATTENTION DEFICIT/HYPERACTIVITY DISORDER
     Dosage: 150 MG DAILY
     Dates: end: 20131013
  2. RITALIN [Suspect]
     Indication: OFF LABEL USE
  3. OMEPRAZOLE [Concomitant]
     Dosage: 40 MG PER DAY
  4. POLACIN [Concomitant]
     Dosage: 5 MG, PER DAY
  5. ZOPIKLON [Concomitant]
     Dosage: 7.5 MG PER DAY
  6. LANZO [Concomitant]
     Dosage: 30 MG PER DAY
     Dates: end: 20131013
  7. ENBREL [Concomitant]
     Dosage: 50 MG / ONCE A WEEK
  8. VITAMIN D [Concomitant]
     Dosage: 10 DRP,PER DAY

REACTIONS (2)
  - Myocardial infarction [Recovered/Resolved with Sequelae]
  - Drug administered to patient of inappropriate age [Unknown]
